FAERS Safety Report 11032483 (Version 2)
Quarter: 2015Q3

REPORT INFORMATION
  Report Type: Spontaneous
  Country: US (occurrence: US)
  Receive Date: 20150415
  Receipt Date: 20150713
  Transmission Date: 20151125
  Serious: Yes (Hospitalization)
  Sender: FDA-Public Use
  Company Number: US-ABBVIE-15P-163-1375334-00

PATIENT
  Sex: Male

DRUGS (1)
  1. ANDROGEL [Suspect]
     Active Substance: TESTOSTERONE
     Indication: ANDROGEN REPLACEMENT THERAPY
     Route: 061
     Dates: start: 20130207, end: 20131116

REACTIONS (7)
  - Emotional distress [Unknown]
  - Amnesia [Unknown]
  - Ischaemic stroke [Unknown]
  - Depression [Unknown]
  - Impaired work ability [Unknown]
  - Multiple injuries [Unknown]
  - Economic problem [Unknown]

NARRATIVE: CASE EVENT DATE: 20131117
